FAERS Safety Report 6992605-9 (Version None)
Quarter: 2010Q3

REPORT INFORMATION
  Report Type: 
  Country: None (occurrence: None)
  Receive Date: 20100917
  Receipt Date: 20100913
  Transmission Date: 20110219
  Serious: Yes (Hospitalization)
  Sender: FDA-Public Use
  Company Number: FR-ROCHE-726912

PATIENT
  Sex: Male

DRUGS (9)
  1. ROCEPHIN [Suspect]
     Indication: PRODUCT USED FOR UNKNOWN INDICATION
     Route: 042
     Dates: start: 20100427, end: 20100502
  2. ROCEPHIN [Suspect]
     Dosage: TAKEN ON TUESDAYS, THURSDAY AND ON SATURDAY
     Route: 042
     Dates: start: 20100502, end: 20100505
  3. PLAVIX [Concomitant]
     Dates: start: 20100427
  4. LOXEN [Concomitant]
     Dosage: DRUG REPORTED AS LOXEN LP
     Dates: start: 20100427
  5. NEXIUM [Concomitant]
     Dates: start: 20100427
  6. MACROGOL [Concomitant]
     Dosage: FORM: SACHET
     Dates: start: 20100427
  7. SERTRALINE HYDROCHLORIDE [Concomitant]
     Dates: start: 20100427
  8. EUPRESSYL [Concomitant]
     Dates: start: 20100427
  9. BROMAZEPAM [Concomitant]
     Dates: start: 20100427

REACTIONS (1)
  - ENCEPHALOPATHY [None]
